FAERS Safety Report 17860013 (Version 2)
Quarter: 2020Q2

REPORT INFORMATION
  Report Type: Report from Study
  Country: CA (occurrence: CA)
  Receive Date: 20200604
  Receipt Date: 20200625
  Transmission Date: 20200714
  Serious: Yes (Other)
  Sender: FDA-Public Use
  Company Number: CA-JNJFOC-20200532197

PATIENT
  Age: 49 Year
  Sex: Male
  Weight: 109 kg

DRUGS (2)
  1. REMICADE [Suspect]
     Active Substance: INFLIXIMAB
     Route: 042
  2. REMICADE [Suspect]
     Active Substance: INFLIXIMAB
     Indication: CROHN^S DISEASE
     Route: 042
     Dates: start: 20120924

REACTIONS (5)
  - Off label use [Unknown]
  - Lung neoplasm malignant [Unknown]
  - Crohn^s disease [Not Recovered/Not Resolved]
  - Lymphadenopathy [Unknown]
  - Product use issue [Unknown]

NARRATIVE: CASE EVENT DATE: 202005
